FAERS Safety Report 4271988-7 (Version None)
Quarter: 2004Q1

REPORT INFORMATION
  Report Type: 
  Country: None (occurrence: None)
  Receive Date: 20040115
  Receipt Date: 20040106
  Transmission Date: 20041129
  Serious: Yes (Disabling)
  Sender: FDA-Public Use
  Company Number: JP-BRISTOL-MYERS SQUIBB COMPANY-12476644

PATIENT
  Age: 67 Year
  Sex: Male

DRUGS (5)
  1. GATIFLO [Suspect]
     Indication: INTERSTITIAL LUNG DISEASE
     Dosage: 100 MG TABLET
     Route: 048
     Dates: start: 20031226
  2. OMEGACIN [Concomitant]
     Route: 048
     Dates: start: 20031001
  3. MAGMITT [Concomitant]
     Route: 048
  4. MUCOSTA [Concomitant]
     Route: 048
  5. PREDONINE [Concomitant]
     Route: 048

REACTIONS (1)
  - HYPERGLYCAEMIA [None]
